FAERS Safety Report 24876128 (Version 1)
Quarter: 2025Q1

REPORT INFORMATION
  Report Type: Spontaneous
  Country: US (occurrence: US)
  Receive Date: 20250123
  Receipt Date: 20250123
  Transmission Date: 20250408
  Serious: No
  Sender: AUROBINDO
  Company Number: US-AUROBINDO-AUR-APL-2024-017240

PATIENT
  Sex: Female
  Weight: 13.1 kg

DRUGS (1)
  1. CEFDINIR [Suspect]
     Active Substance: CEFDINIR
     Indication: Ear infection
     Dosage: 3.5 MILLILITER, TWO TIMES A DAY (3.5ML IN EVERY 12 HOURS)
     Route: 065
     Dates: start: 20240313

REACTIONS (2)
  - Product administration error [Unknown]
  - Product storage error [Unknown]
